FAERS Safety Report 7321158-0 (Version None)
Quarter: 2011Q1

REPORT INFORMATION
  Report Type: 
  Country: None (occurrence: None)
  Receive Date: 20110228
  Receipt Date: 20110217
  Transmission Date: 20110831
  Serious: Yes (Hospitalization)
  Sender: FDA-Public Use
  Company Number: US-JNJFOC-20110204123

PATIENT
  Sex: Male
  Weight: 33 kg

DRUGS (4)
  1. MEROPENEM [Concomitant]
     Route: 065
  2. REMICADE [Suspect]
     Indication: CROHN'S DISEASE
     Route: 042
  3. METRONIDAZOLE [Concomitant]
     Route: 065
  4. HUMIRA [Concomitant]

REACTIONS (1)
  - PANCREATITIS [None]
